FAERS Safety Report 15696755 (Version 1)
Quarter: 2018Q4

REPORT INFORMATION
  Report Type: Spontaneous
  Country: US (occurrence: US)
  Receive Date: 20181206
  Receipt Date: 20181206
  Transmission Date: 20190205
  Serious: No
  Sender: FDA-Public Use
  Company Number: US-PFIZER INC-2018474936

PATIENT
  Age: 47 Year

DRUGS (1)
  1. LYRICA [Suspect]
     Active Substance: PREGABALIN
     Dosage: 100 MG, 2X/DAY (1 CAPSULE 1-3 HOURS BEFORE BEDTIME IN THE EVENING TWICE A DAY)

REACTIONS (1)
  - Pain in extremity [Unknown]
